FAERS Safety Report 4848842-2 (Version None)
Quarter: 2005Q4

REPORT INFORMATION
  Report Type: 
  Country: None (occurrence: None)
  Receive Date: 20051115
  Receipt Date: 20051006
  Transmission Date: 20060501
  Serious: Yes (Other)
  Sender: FDA-Public Use
  Company Number: 393663

PATIENT
  Age: 55 Year
  Sex: Male

DRUGS (2)
  1. PEGASYS [Suspect]
     Indication: HEPATITIS C
     Dosage: OTHER
     Route: 050
     Dates: end: 20050501
  2. COPEGUS [Suspect]
     Indication: HEPATITIS C
     Dosage: 1200 MG, ORAL
     Route: 048
     Dates: end: 20050501

REACTIONS (9)
  - ARTHRALGIA [None]
  - FATIGUE [None]
  - HAEMOGLOBIN ABNORMAL [None]
  - MYALGIA [None]
  - NEUTROPHIL COUNT ABNORMAL [None]
  - RASH [None]
  - RED BLOOD CELL COUNT DECREASED [None]
  - WEIGHT INCREASED [None]
  - WHITE BLOOD CELL COUNT DECREASED [None]
